FAERS Safety Report 12256608 (Version 1)
Quarter: 2016Q2

REPORT INFORMATION
  Report Type: Spontaneous
  Country: US (occurrence: None)
  Receive Date: 20160411
  Receipt Date: 20160411
  Transmission Date: 20160815
  Serious: No
  Sender: FDA-Public Use
  Company Number: None

PATIENT
  Age: 33 Year
  Sex: Female

DRUGS (1)
  1. HUMIRA [Suspect]
     Active Substance: ADALIMUMAB
     Indication: PSORIATIC ARTHROPATHY
     Route: 058
     Dates: start: 201603, end: 201604

REACTIONS (6)
  - Fatigue [None]
  - Vomiting [None]
  - Pain in extremity [None]
  - Peripheral swelling [None]
  - Nausea [None]
  - Drug specific antibody present [None]

NARRATIVE: CASE EVENT DATE: 201604
